FAERS Safety Report 10344697 (Version 1)
Quarter: 2014Q3

REPORT INFORMATION
  Report Type: Spontaneous
  Country: US (occurrence: US)
  Receive Date: 20140728
  Receipt Date: 20140728
  Transmission Date: 20150326
  Serious: Yes (Other)
  Sender: FDA-Public Use
  Company Number: US-JNJFOC-20140715739

PATIENT
  Sex: Male
  Weight: 104.33 kg

DRUGS (1)
  1. TRAMADOL ER [Suspect]
     Active Substance: TRAMADOL HYDROCHLORIDE
     Indication: PAIN
     Dosage: 50 MG EVERY 4 TO 6 HOURS
     Dates: start: 2014, end: 2014

REACTIONS (5)
  - Intentional product misuse [Recovered/Resolved]
  - Dental operation [Unknown]
  - Drug ineffective [Recovered/Resolved]
  - Anaesthetic complication [Recovered/Resolved]
  - Drug tolerance [Not Recovered/Not Resolved]

NARRATIVE: CASE EVENT DATE: 2014
